FAERS Safety Report 10585407 (Version 2)
Quarter: 2014Q4

REPORT INFORMATION
  Report Type: Spontaneous
  Country: DE (occurrence: DE)
  Receive Date: 20141114
  Receipt Date: 20141114
  Transmission Date: 20150529
  Serious: Yes (Hospitalization)
  Sender: FDA-Public Use
  Company Number: DE-TEVA-513970GER

PATIENT
  Age: 66 Year
  Sex: Female
  Weight: 55 kg

DRUGS (1)
  1. LARBEX 0,5 MG/2 ML STERI-NEB SUSPENSION F?R EINEN VERNEBLER [Suspect]
     Active Substance: BUDESONIDE
     Indication: ASTHMA
     Dosage: 1 DOSAGE FORMS DAILY;
     Route: 055

REACTIONS (2)
  - Dyspnoea [Recovered/Resolved]
  - Drug hypersensitivity [Unknown]

NARRATIVE: CASE EVENT DATE: 20140918
